FAERS Safety Report 5324301-8 (Version None)
Quarter: 2007Q2

REPORT INFORMATION
  Report Type: 
  Country: None (occurrence: None)
  Receive Date: 20070514
  Receipt Date: 20070509
  Transmission Date: 20071010
  Serious: Yes (Other)
  Sender: FDA-Public Use
  Company Number: BE-BOEHRINGER INGELHEIM PHARMACEUTICALS, INC.-2007-DE-02772GD

PATIENT

DRUGS (4)
  1. ASPIRIN [Suspect]
     Indication: ANTIPLATELET THERAPY
     Route: 048
  2. DIPYRIDAMOLE [Suspect]
     Indication: ANTIPLATELET THERAPY
     Route: 048
  3. CLOPIDOGREL [Suspect]
     Indication: ANTIPLATELET THERAPY
  4. ENOXAPARIN SODIUM [Suspect]
     Indication: ANTICOAGULANT THERAPY
     Route: 058

REACTIONS (1)
  - TRANSIENT ISCHAEMIC ATTACK [None]
